FAERS Safety Report 5118625-7 (Version None)
Quarter: 2006Q4

REPORT INFORMATION
  Report Type: 
  Country: None (occurrence: None)
  Receive Date: 20061002
  Receipt Date: 20060906
  Transmission Date: 20070319
  Serious: Yes (Hospitalization)
  Sender: FDA-Public Use
  Company Number: FR-GLAXOSMITHKLINE-B0437426A

PATIENT
  Age: 78 Year
  Sex: Male

DRUGS (2)
  1. ZELITREX [Suspect]
     Indication: ANTIVIRAL PROPHYLAXIS
     Dosage: 2TAB THREE TIMES PER DAY
     Route: 048
     Dates: start: 20050916, end: 20060220
  2. CHIBROCADRON [Concomitant]
     Indication: PROPHYLAXIS AGAINST TRANSPLANT REJECTION
     Dosage: 1DROP THREE TIMES PER DAY
     Route: 047
     Dates: start: 20050916

REACTIONS (3)
  - DISEASE RECURRENCE [None]
  - DRUG INEFFECTIVE [None]
  - KERATITIS HERPETIC [None]
